FAERS Safety Report 6908457-9 (Version None)
Quarter: 2010Q3

REPORT INFORMATION
  Report Type: 
  Country: None (occurrence: None)
  Receive Date: 20100805
  Receipt Date: 20100802
  Transmission Date: 20110219
  Serious: Yes (Death, Hospitalization)
  Sender: FDA-Public Use
  Company Number: FR-JNJFOC-20100800322

PATIENT
  Age: 53 Year
  Sex: Female

DRUGS (3)
  1. LEVOFLOXACIN [Suspect]
     Indication: SEPTIC SHOCK
     Route: 042
  2. LOVENOX [Suspect]
     Indication: SEPTIC SHOCK
     Route: 058
  3. HEPARIN CHOAY [Suspect]
     Indication: SEPTIC SHOCK
     Route: 042

REACTIONS (8)
  - ACUTE RESPIRATORY DISTRESS SYNDROME [None]
  - CARDIAC FAILURE [None]
  - CIRCULATORY COLLAPSE [None]
  - ISCHAEMIC STROKE [None]
  - LUNG DISORDER [None]
  - MULTI-ORGAN FAILURE [None]
  - RENAL FAILURE [None]
  - THROMBOCYTOPENIA [None]
